FAERS Safety Report 5099778-6 (Version None)
Quarter: 2006Q3

REPORT INFORMATION
  Report Type: 
  Country: None (occurrence: None)
  Receive Date: 20060906
  Receipt Date: 20060822
  Transmission Date: 20061208
  Serious: Yes (Hospitalization)
  Sender: FDA-Public Use
  Company Number: 2006078126

PATIENT
  Age: 79 Year
  Sex: Female
  Weight: 60 kg

DRUGS (10)
  1. LYRICA [Suspect]
     Indication: DIABETIC NEUROPATHY
     Dosage: 50 MG (50 MG, 1 IN 1 D); ORAL
     Route: 048
     Dates: start: 20060609, end: 20060609
  2. TOREM (TORASEMIDE) [Concomitant]
  3. PANTOZOL (PANTOPRAZOLE SODIUM) [Concomitant]
  4. ACETYLSALICYLIC ACID SRT [Concomitant]
  5. BELOC-ZOC COMP (HYDROCHLOROTHIAZIDE, METOPROLOL SUCCINATE) [Concomitant]
  6. GLUCOPHAGE [Concomitant]
  7. TILIDINE (TILIDINE) [Concomitant]
  8. ARCOXIA [Concomitant]
  9. CALCIMAGON (CALCIUM CARBONATE) [Concomitant]
  10. PREDISOLON (PREDNISOLONE) [Concomitant]

REACTIONS (9)
  - ASTHENIA [None]
  - BRADYCARDIA [None]
  - CIRCULATORY COLLAPSE [None]
  - DIZZINESS [None]
  - EXCORIATION [None]
  - FALL [None]
  - HEART RATE DECREASED [None]
  - HYPOTENSION [None]
  - LOSS OF CONSCIOUSNESS [None]
